FAERS Safety Report 16056663 (Version 1)
Quarter: 2019Q1

REPORT INFORMATION
  Report Type: Spontaneous
  Country: RO (occurrence: RO)
  Receive Date: 20190311
  Receipt Date: 20190311
  Transmission Date: 20190418
  Serious: Yes (Life-Threatening)
  Sender: FDA-Public Use
  Company Number: RO-009507513-1903ROM001198

PATIENT
  Age: 61 Year
  Sex: Male

DRUGS (5)
  1. INVANZ [Suspect]
     Active Substance: ERTAPENEM SODIUM
     Indication: URINARY TRACT INFECTION
     Route: 042
     Dates: start: 20190117, end: 20190117
  2. THIAMINE. [Concomitant]
     Active Substance: THIAMINE
     Dosage: 1 AMPOULE/ DAY
     Route: 042
     Dates: start: 20190115, end: 20190117
  3. CALCIUM CHLORIDE (+) POTASSIUM CHLORIDE (+) SODIUM CHLORIDE (+) SODIUM [Concomitant]
     Active Substance: CALCIUM CHLORIDE\POTASSIUM CHLORIDE\SODIUM CHLORIDE\SODIUM LACTATE
     Dosage: 500 MILLILITER
     Route: 042
     Dates: start: 20190112, end: 20190117
  4. DEXTROSE. [Concomitant]
     Active Substance: DEXTROSE
     Dosage: 500 MILLILITER
     Route: 042
     Dates: start: 20190112, end: 20190117
  5. PYRIDOXINE [Concomitant]
     Active Substance: PYRIDOXINE
     Dosage: 1 AMPULE
     Route: 042
     Dates: start: 20190115, end: 20190117

REACTIONS (6)
  - Dyspnoea [Recovered/Resolved]
  - Tachypnoea [Recovered/Resolved]
  - Bronchospasm [Recovered/Resolved]
  - Anaphylactic shock [Recovered/Resolved]
  - Generalised erythema [Recovered/Resolved]
  - Psychomotor hyperactivity [Recovered/Resolved]

NARRATIVE: CASE EVENT DATE: 20190117
